FAERS Safety Report 7575285-3 (Version None)
Quarter: 2011Q2

REPORT INFORMATION
  Report Type: 
  Country: None (occurrence: None)
  Receive Date: 20110627
  Receipt Date: 20110621
  Transmission Date: 20111010
  Serious: Yes (Hospitalization, Other)
  Sender: FDA-Public Use
  Company Number: AU-PFIZER INC-2011124177

PATIENT
  Age: 55 Year
  Sex: Female
  Weight: 75 kg

DRUGS (2)
  1. DILANTIN [Suspect]
     Indication: EPILEPSY
     Dosage: ONE CAPSULE IN THE MORNING AND TWO CAPSULES AT NIGHT
     Route: 048
  2. KEPPRA [Suspect]
     Dosage: UNK
     Dates: start: 20110401

REACTIONS (6)
  - VISUAL IMPAIRMENT [None]
  - STEVENS-JOHNSON SYNDROME [None]
  - LIVER FUNCTION TEST ABNORMAL [None]
  - CONJUNCTIVAL IRRITATION [None]
  - MUCOSAL INFLAMMATION [None]
  - HYPERSENSITIVITY [None]
